FAERS Safety Report 5859339-5 (Version None)
Quarter: 2008Q3

REPORT INFORMATION
  Report Type: 
  Country: None (occurrence: None)
  Receive Date: 20080827
  Receipt Date: 20080526
  Transmission Date: 20090109
  Serious: Yes (Hospitalization)
  Sender: FDA-Public Use
  Company Number: CA-BAYER-200824200NA

PATIENT
  Age: 43 Year
  Sex: Female
  Weight: 127 kg

DRUGS (9)
  1. AVELOX [Suspect]
     Indication: PNEUMONIA
     Dosage: TOTAL DAILY DOSE: 400 MG  UNIT DOSE: 400 MG
     Route: 048
     Dates: start: 20080418, end: 20080419
  2. AVANDIA [Concomitant]
     Dosage: TOTAL DAILY DOSE: 4 MG
     Route: 048
  3. OXYBUTYNIN [Concomitant]
     Dosage: TOTAL DAILY DOSE: 5 MG
     Route: 048
  4. RABEPRAZOLE SODIUM [Concomitant]
     Dosage: TOTAL DAILY DOSE: 20 MG
     Route: 048
  5. OXYCONTIN [Concomitant]
     Dosage: TOTAL DAILY DOSE: 40 MG
     Route: 048
  6. PERCOCET [Concomitant]
  7. ADVAIR DISKUS 100/50 [Concomitant]
     Route: 055
  8. SALBUTAMOL [Concomitant]
     Route: 055
  9. SPIRIVA [Concomitant]

REACTIONS (6)
  - BURNING SENSATION [None]
  - DYSPNOEA [None]
  - GENERALISED ERYTHEMA [None]
  - HYPERSENSITIVITY [None]
  - RASH GENERALISED [None]
  - SWELLING [None]
